FAERS Safety Report 5636500-6 (Version None)
Quarter: 2008Q1

REPORT INFORMATION
  Report Type: 
  Country: None (occurrence: None)
  Receive Date: 20080225
  Receipt Date: 20080214
  Transmission Date: 20080703
  Serious: Yes (Hospitalization)
  Sender: FDA-Public Use
  Company Number: FR-RANBAXY-2008US-13210

PATIENT

DRUGS (8)
  1. ISOPTIN SR [Suspect]
     Indication: ARRHYTHMIA
     Dosage: 120 MG, UNK
     Route: 048
     Dates: start: 20070301, end: 20070403
  2. AMIODARONE HCL [Suspect]
     Indication: ARRHYTHMIA
     Dosage: UNK
     Route: 048
     Dates: start: 20070305, end: 20070315
  3. VALSARTAN [Suspect]
     Indication: HYPERTENSION
     Dosage: UNK
     Route: 048
     Dates: end: 20070403
  4. INDAPAMIDE [Suspect]
     Indication: HYPERTENSION
     Dosage: 1.5 MG, UNK
     Route: 048
     Dates: end: 20070403
  5. CELIPROLOL [Concomitant]
     Indication: DRUG USE FOR UNKNOWN INDICATION
     Dosage: UNK
     Route: 065
  6. DILTIAZEM [Concomitant]
     Indication: DRUG USE FOR UNKNOWN INDICATION
     Dosage: UNK
     Route: 065
     Dates: start: 20070401
  7. CANDESARTAN [Concomitant]
     Indication: DRUG USE FOR UNKNOWN INDICATION
     Dosage: UNK
     Route: 065
     Dates: start: 20070401
  8. ACENOCOUMAROL [Concomitant]
     Indication: DRUG USE FOR UNKNOWN INDICATION
     Dosage: UNK
     Route: 065
     Dates: start: 20070401

REACTIONS (3)
  - BRADYCARDIA [None]
  - FALL [None]
  - HYPOTENSION [None]
